FAERS Safety Report 25282780 (Version 1)
Quarter: 2025Q2

REPORT INFORMATION
  Report Type: Spontaneous
  Country: US (occurrence: None)
  Receive Date: 20250508
  Receipt Date: 20250508
  Transmission Date: 20250717
  Serious: Yes (Hospitalization)
  Sender: FDA-CTU
  Company Number: None

PATIENT
  Age: 66 Year
  Sex: Male
  Weight: 82 kg

DRUGS (1)
  1. DOXORUBICIN HYDROCHLORIDE [Suspect]
     Active Substance: DOXORUBICIN HYDROCHLORIDE
     Dates: end: 20250417

REACTIONS (6)
  - White blood cell count decreased [None]
  - Haemoglobin decreased [None]
  - Neutrophil count decreased [None]
  - Body temperature increased [None]
  - Gram stain positive [None]
  - Pain [None]

NARRATIVE: CASE EVENT DATE: 20250424
